FAERS Safety Report 10243298 (Version 2)
Quarter: 2014Q3

REPORT INFORMATION
  Report Type: Report from Study
  Country: BR (occurrence: BR)
  Receive Date: 20140618
  Receipt Date: 20140715
  Transmission Date: 20150326
  Serious: Yes (Other)
  Sender: FDA-Public Use
  Company Number: PHHY2014BR074208

PATIENT
  Sex: Male
  Weight: 52.2 kg

DRUGS (2)
  1. SANDOSTATIN LAR DEPOT [Suspect]
     Active Substance: OCTREOTIDE ACETATE
     Indication: OFF LABEL USE
  2. SANDOSTATIN LAR DEPOT [Suspect]
     Active Substance: OCTREOTIDE ACETATE
     Indication: LUNG NEOPLASM
     Dosage: 1 DF, QMO
     Dates: start: 201312

REACTIONS (5)
  - Drug intolerance [Unknown]
  - Pain [Unknown]
  - Malaise [Unknown]
  - Neoplasm [Unknown]
  - Drug ineffective [Unknown]
